FAERS Safety Report 23966515 (Version 2)
Quarter: 2024Q2

REPORT INFORMATION
  Report Type: Report from Study
  Country: CA (occurrence: CA)
  Receive Date: 20240612
  Receipt Date: 20240627
  Transmission Date: 20240715
  Serious: Yes (Other)
  Sender: FDA-Public Use
  Company Number: CA-MYLANLABS-2023M1033101

PATIENT

DRUGS (9)
  1. HULIO [Suspect]
     Active Substance: ADALIMUMAB-FKJP
     Indication: Colitis ulcerative
     Dosage: 160 MILLIGRAM, WEEK 0
     Route: 058
  2. HULIO [Suspect]
     Active Substance: ADALIMUMAB-FKJP
     Dosage: 80 MILLIGRAM, WEEK 2
     Route: 058
  3. HULIO [Suspect]
     Active Substance: ADALIMUMAB-FKJP
     Dosage: 40 MILLIGRAM, EVERY OTHER WEEK
     Route: 058
  4. HULIO [Suspect]
     Active Substance: ADALIMUMAB-FKJP
     Dosage: 40 MILLIGRAM, 14
     Route: 058
     Dates: start: 20230330
  5. HULIO [Suspect]
     Active Substance: ADALIMUMAB-FKJP
     Dosage: UNK
     Route: 058
  6. HULIO [Suspect]
     Active Substance: ADALIMUMAB-FKJP
     Dosage: UNK, QWEEK
     Route: 058
  7. HULIO [Suspect]
     Active Substance: ADALIMUMAB-FKJP
     Dosage: UNK UNK, Q2W
     Route: 058
  8. HULIO [Suspect]
     Active Substance: ADALIMUMAB-FKJP
     Dosage: 40 MILLIGRAM, QW
     Route: 058
     Dates: start: 20230327
  9. HULIO [Suspect]
     Active Substance: ADALIMUMAB-FKJP
     Dosage: 40 MILLIGRAM, QW
     Route: 058
     Dates: start: 20230331

REACTIONS (4)
  - Cholangitis sclerosing [Unknown]
  - Colitis ulcerative [Unknown]
  - Off label use [Unknown]
  - Product dose omission issue [Unknown]
